FAERS Safety Report 5236774-X (Version None)
Quarter: 2007Q1

REPORT INFORMATION
  Report Type: 
  Country: None (occurrence: None)
  Receive Date: 20061208
  Receipt Date: 20050223
  Transmission Date: 20070707
  Serious: Yes (Other)
  Sender: FDA-Public Use
  Company Number: 2004UW24801

PATIENT
  Age: 47 Year
  Sex: Male
  Weight: 70.306 kg

DRUGS (6)
  1. CRESTOR [Suspect]
     Indication: BLOOD CHOLESTEROL INCREASED
     Dosage: 10 MG PO
     Route: 048
     Dates: start: 20040101, end: 20040601
  2. CRESTOR [Suspect]
     Indication: BLOOD CHOLESTEROL INCREASED
     Dosage: 20 MG PO
     Route: 048
     Dates: start: 20040601, end: 20040701
  3. CRESTOR [Suspect]
     Indication: BLOOD CHOLESTEROL INCREASED
     Dosage: 10 MG PO
     Route: 048
     Dates: start: 20040701, end: 20040101
  4. ACEON [Concomitant]
  5. NIACIN [Concomitant]
  6. ZETIA [Concomitant]

REACTIONS (7)
  - DEPRESSION [None]
  - ERECTILE DYSFUNCTION [None]
  - FEELING ABNORMAL [None]
  - MOOD ALTERED [None]
  - PERSONALITY DISORDER [None]
  - SEXUAL DYSFUNCTION [None]
  - SOCIAL AVOIDANT BEHAVIOUR [None]
